FAERS Safety Report 9137236 (Version 1)
Quarter: 2013Q1

REPORT INFORMATION
  Report Type: Spontaneous
  Country: US (occurrence: US)
  Receive Date: 20130219
  Receipt Date: 20130219
  Transmission Date: 20140127
  Serious: No
  Sender: FDA-Public Use
  Company Number: US-BRISTOL-MYERS SQUIBB COMPANY-17142431

PATIENT
  Age: 41 Year
  Sex: Male

DRUGS (1)
  1. ORENCIA FOR INJ [Suspect]
     Dosage: 1DF = 125MG/ML?125MG/ML PFS(4 PACK)
     Route: 058

REACTIONS (2)
  - Blood prolactin increased [Unknown]
  - Blood potassium increased [Unknown]
